FAERS Safety Report 12852165 (Version 1)
Quarter: 2016Q4

REPORT INFORMATION
  Report Type: Spontaneous
  Country: EE (occurrence: EE)
  Receive Date: 20161017
  Receipt Date: 20161017
  Transmission Date: 20170207
  Serious: Yes (Hospitalization)
  Sender: FDA-Public Use
  Company Number: EE-GLAXOSMITHKLINE-EE2016GSK148129

PATIENT

DRUGS (1)
  1. ZINNAT [Suspect]
     Active Substance: CEFUROXIME AXETIL
     Indication: SOFT TISSUE INFECTION
     Dosage: 500 MG, BID
     Route: 048

REACTIONS (2)
  - General physical health deterioration [Unknown]
  - Drug ineffective [Unknown]
